FAERS Safety Report 10206467 (Version 2)
Quarter: 2014Q2

REPORT INFORMATION
  Report Type: Spontaneous
  Country: PL (occurrence: PL)
  Receive Date: 20140530
  Receipt Date: 20140605
  Transmission Date: 20141212
  Serious: Yes (Hospitalization, Other)
  Sender: FDA-Public Use
  Company Number: PHHY2014PL064334

PATIENT
  Age: 62 Year
  Sex: Male
  Weight: 76 kg

DRUGS (3)
  1. ONBREZ [Suspect]
     Indication: CHRONIC OBSTRUCTIVE PULMONARY DISEASE
     Dosage: 300 UG DAILY
     Route: 055
     Dates: start: 20140522
  2. SPIRIVA [Concomitant]
     Indication: CHRONIC OBSTRUCTIVE PULMONARY DISEASE
     Dosage: 1X2 CAPS
     Route: 055
     Dates: start: 20140520
  3. FLUTIXON [Concomitant]
     Indication: CHRONIC OBSTRUCTIVE PULMONARY DISEASE
     Dosage: 250 UG PER DAY 2X
     Route: 055
     Dates: start: 20140520

REACTIONS (4)
  - Vomiting [Recovering/Resolving]
  - Nausea [Recovering/Resolving]
  - Bronchospasm paradoxical [Recovering/Resolving]
  - Vertigo [Recovering/Resolving]
